FAERS Safety Report 7333091-9 (Version None)
Quarter: 2011Q1

REPORT INFORMATION
  Report Type: 
  Country: None (occurrence: None)
  Receive Date: 20110304
  Receipt Date: 20110222
  Transmission Date: 20110831
  Serious: Yes (Death, Life-Threatening)
  Sender: FDA-Public Use
  Company Number: CA-ABBOTT-09P-028-0601656-00

PATIENT
  Sex: Male
  Weight: 77 kg

DRUGS (15)
  1. PREDNISONE [Concomitant]
     Dates: start: 20080206, end: 20080212
  2. PREDNISONE [Concomitant]
     Dates: start: 20080326
  3. PREDNISONE [Concomitant]
     Dates: start: 20090211, end: 20090217
  4. PREDNISONE [Concomitant]
     Dates: start: 20080213, end: 20080219
  5. PREDNISONE [Concomitant]
     Dates: start: 20080227, end: 20080304
  6. PREDNISONE [Concomitant]
     Indication: COLITIS ULCERATIVE
     Dates: start: 20080121, end: 20080125
  7. PREDNISONE [Concomitant]
     Dates: start: 20090204, end: 20090210
  8. PREDNISONE [Concomitant]
     Dates: start: 20080318, end: 20080323
  9. PREDNISONE [Concomitant]
     Dates: start: 20080116, end: 20080120
  10. PREDNISONE [Concomitant]
     Dates: start: 20090128, end: 20090203
  11. HUMIRA [Suspect]
     Indication: COLITIS ULCERATIVE
     Route: 058
     Dates: start: 20090413, end: 20091005
  12. PREDNISONE [Concomitant]
     Dates: start: 20090121, end: 20090127
  13. PREDNISONE [Concomitant]
     Dates: start: 20080126, end: 20080130
  14. PREDNISONE [Concomitant]
     Dates: start: 20080220, end: 20080226
  15. PREDNISONE [Concomitant]
     Dates: start: 20080305, end: 20080317

REACTIONS (4)
  - ADRENAL HAEMORRHAGE [None]
  - CARDIO-RESPIRATORY ARREST [None]
  - INFECTION [None]
  - SHOCK [None]
